FAERS Safety Report 12866489 (Version 1)
Quarter: 2016Q4

REPORT INFORMATION
  Report Type: Spontaneous
  Country: US (occurrence: US)
  Receive Date: 20161020
  Receipt Date: 20161020
  Transmission Date: 20170207
  Serious: No
  Sender: FDA-Public Use
  Company Number: US-SA-2016SA109449

PATIENT
  Sex: Female

DRUGS (1)
  1. AUBAGIO [Suspect]
     Active Substance: TERIFLUNOMIDE
     Route: 065

REACTIONS (6)
  - Feeling abnormal [Unknown]
  - Bronchitis [Unknown]
  - Ear infection [Unknown]
  - Pain [Unknown]
  - Sinusitis [Unknown]
  - Malaise [Unknown]
